FAERS Safety Report 6190114-0 (Version None)
Quarter: 2009Q2

REPORT INFORMATION
  Report Type: 
  Country: None (occurrence: None)
  Receive Date: 20090514
  Receipt Date: 20090506
  Transmission Date: 20091009
  Serious: Yes (Other)
  Sender: FDA-Public Use
  Company Number: FR-JNJFOC-20090303495

PATIENT
  Sex: Male
  Weight: 82 kg

DRUGS (5)
  1. INTELENCE [Suspect]
     Indication: HIV INFECTION
     Route: 048
  2. NEORAL [Concomitant]
     Indication: LIVER TRANSPLANT
  3. EPIVIR [Concomitant]
     Indication: HEPATITIS B VIRUS TEST
  4. KALETRA [Concomitant]
     Indication: HIV INFECTION
  5. ISENTRESS [Concomitant]
     Indication: HIV INFECTION

REACTIONS (5)
  - ERYTHEMA [None]
  - FACE OEDEMA [None]
  - PALPITATIONS [None]
  - PRURITUS [None]
  - TREMOR [None]
